FAERS Safety Report 12507834 (Version 1)
Quarter: 2016Q2

REPORT INFORMATION
  Report Type: Spontaneous
  Country: NL (occurrence: NL)
  Receive Date: 20160629
  Receipt Date: 20160629
  Transmission Date: 20160815
  Serious: Yes (Disabling)
  Sender: FDA-Public Use
  Company Number: NL-TEVA-670491ACC

PATIENT
  Age: 73 Year
  Sex: Female
  Weight: 120 kg

DRUGS (1)
  1. AMIODARON HCL TEVA TABLET 200 MG [Suspect]
     Active Substance: AMIODARONE HYDROCHLORIDE
     Indication: ARRHYTHMIA
     Dosage: 200 MILLIGRAM DAILY; 1 TIME PER DAY 1 TABLET
     Route: 048
     Dates: start: 201601

REACTIONS (2)
  - Condition aggravated [Not Recovered/Not Resolved]
  - Pain in extremity [Not Recovered/Not Resolved]

NARRATIVE: CASE EVENT DATE: 201601
